FAERS Safety Report 20536456 (Version 1)
Quarter: 2022Q1

REPORT INFORMATION
  Report Type: Spontaneous
  Country: CA (occurrence: CA)
  Receive Date: 20220302
  Receipt Date: 20220302
  Transmission Date: 20220423
  Serious: Yes (Other)
  Sender: FDA-Public Use
  Company Number: CA-JNJFOC-20211201633

PATIENT
  Sex: Male

DRUGS (3)
  1. INFLIXIMAB [Suspect]
     Active Substance: INFLIXIMAB
     Indication: Crohn^s disease
     Route: 042
  2. MODERNA COVID-19 VACCINE [Suspect]
     Active Substance: ELASOMERAN
     Indication: COVID-19 immunisation
     Dosage: COVID-19 VACCINE MODERNA VIAL CONTAINS 10 DOSES OF 0.5ML
     Route: 030
  3. MODERNA COVID-19 VACCINE [Suspect]
     Active Substance: ELASOMERAN
     Dosage: COVID-19 VACCINE MODERNA VIAL CONTAINS 10 DOSES OF 0.5ML
     Route: 065

REACTIONS (2)
  - Porphyria acute [Not Recovered/Not Resolved]
  - Faecal volume increased [Not Recovered/Not Resolved]
